FAERS Safety Report 11781590 (Version 4)
Quarter: 2015Q4

REPORT INFORMATION
  Report Type: Spontaneous
  Country: US (occurrence: US)
  Receive Date: 20151126
  Receipt Date: 20151218
  Transmission Date: 20160305
  Serious: Yes (Hospitalization)
  Sender: FDA-Public Use
  Company Number: US-JNJFOC-20151118539

PATIENT
  Age: 55 Year
  Sex: Female
  Weight: 79.5 kg

DRUGS (10)
  1. TRIFLURIDINE. [Concomitant]
     Active Substance: TRIFLURIDINE
     Indication: COLORECTAL CANCER METASTATIC
     Route: 048
     Dates: start: 20150504
  2. DILAUDID [Concomitant]
     Active Substance: HYDROMORPHONE HYDROCHLORIDE
     Indication: PAIN
     Route: 065
     Dates: start: 20150818
  3. TRIFLURIDINE. [Concomitant]
     Active Substance: TRIFLURIDINE
     Indication: COLORECTAL CANCER METASTATIC
     Route: 048
     Dates: start: 20150921, end: 20151004
  4. ZOFRAN [Concomitant]
     Active Substance: ONDANSETRON HYDROCHLORIDE
     Indication: NAUSEA
     Route: 065
  5. GABAPENTIN. [Concomitant]
     Active Substance: GABAPENTIN
     Indication: PAIN
     Route: 065
     Dates: start: 20151015
  6. XARELTO [Suspect]
     Active Substance: RIVAROXABAN
     Indication: THROMBOSIS
     Route: 048
     Dates: start: 20150810, end: 20151023
  7. VITAMINE D [Concomitant]
     Indication: VITAMIN SUPPLEMENTATION
     Route: 065
  8. TRAMADOL. [Concomitant]
     Active Substance: TRAMADOL
     Indication: PAIN
     Route: 065
     Dates: start: 20150520
  9. TRIFLURIDINE. [Concomitant]
     Active Substance: TRIFLURIDINE
     Indication: COLORECTAL CANCER METASTATIC
     Route: 048
     Dates: start: 20150710, end: 20150721
  10. ATIVAN [Concomitant]
     Active Substance: LORAZEPAM
     Indication: NAUSEA
     Route: 065

REACTIONS (1)
  - Intraventricular haemorrhage [Recovered/Resolved]

NARRATIVE: CASE EVENT DATE: 20151023
